FAERS Safety Report 10209573 (Version 1)
Quarter: 2014Q2

REPORT INFORMATION
  Report Type: Spontaneous
  Country: US (occurrence: US)
  Receive Date: 20140602
  Receipt Date: 20140602
  Transmission Date: 20141212
  Serious: No
  Sender: FDA-Public Use
  Company Number: US-009507513-1405USA002715

PATIENT
  Sex: Female

DRUGS (1)
  1. ELAVIL (MADE BY MERCK, MARKETED BY ZENECA) [Suspect]

REACTIONS (2)
  - Hypersensitivity [Unknown]
  - Hypersensitivity [Unknown]
